FAERS Safety Report 5138996-5 (Version None)
Quarter: 2006Q4

REPORT INFORMATION
  Report Type: 
  Country: None (occurrence: None)
  Receive Date: 20061030
  Receipt Date: 20061016
  Transmission Date: 20070319
  Serious: Yes (Hospitalization)
  Sender: FDA-Public Use
  Company Number: US-ROCHE-467511

PATIENT
  Age: 74 Year
  Sex: Male
  Weight: 93.4 kg

DRUGS (25)
  1. DIAZEPAM [Suspect]
     Dosage: 5+2.5MG TAKEN AT BEDTIME
     Route: 048
     Dates: start: 19990615
  2. DIAZEPAM [Suspect]
     Dosage: DOSE REDUCED.
     Route: 048
  3. DOXEPIN HCL [Suspect]
     Dosage: TAKEN AT BEDTIME
     Route: 048
     Dates: start: 19970615
  4. DOXEPIN HCL [Suspect]
     Dosage: DOSE DECREASED TO ONE TABLET HS
     Route: 048
  5. SU11248 [Suspect]
     Dosage: FOUR WEEKS ON AND TWO WEEKS OFF
     Route: 048
     Dates: start: 20051026, end: 20051122
  6. SU11248 [Suspect]
     Route: 048
     Dates: start: 20051209
  7. HYDROCODONE [Suspect]
     Dosage: TAKEN AT BEDTIME. DISCONTINUED.
     Route: 048
     Dates: start: 20000615, end: 20051221
  8. AMBIEN [Suspect]
     Dosage: TAKEN AT BEDTIME
     Route: 048
     Dates: start: 19990615
  9. AMBIEN [Suspect]
     Dosage: DOSE DECREASED: REPORTED AS 1/2 PILL HS
     Route: 048
  10. OXYCONTIN [Concomitant]
     Route: 048
     Dates: start: 20050615
  11. METFORMIN HCL [Concomitant]
     Route: 048
  12. LANTUS [Concomitant]
     Route: 058
     Dates: start: 20050615
  13. LIPITOR [Concomitant]
     Route: 048
     Dates: start: 19940615
  14. ZETIA [Concomitant]
     Route: 048
     Dates: start: 19950615
  15. ALTACE [Concomitant]
     Route: 048
     Dates: start: 19950615
  16. ATENOLOL [Concomitant]
     Route: 048
     Dates: start: 19940615
  17. TAMSULOSIN HCL [Concomitant]
     Route: 048
     Dates: start: 20020615
  18. PROSCAR [Concomitant]
     Route: 048
     Dates: start: 20020615
  19. ZANTAC [Concomitant]
     Route: 048
     Dates: start: 19960615
  20. MONTELUKAST SODIUM [Concomitant]
     Route: 048
     Dates: start: 19950615
  21. SEREVENT [Concomitant]
     Route: 055
     Dates: start: 19990615
  22. FLOVENT [Concomitant]
     Route: 055
     Dates: start: 20050615
  23. ACTIGALL [Concomitant]
     Route: 048
     Dates: start: 19900615
  24. REMERON [Concomitant]
     Dosage: TAKEN AT BEDTIME
     Route: 048
     Dates: start: 19950615
  25. STOOL SOFTENER [Concomitant]
     Route: 048
     Dates: start: 20010615

REACTIONS (7)
  - CHILLS [None]
  - CONFUSIONAL STATE [None]
  - ENCEPHALOPATHY [None]
  - HYPOTENSION [None]
  - MENTAL STATUS CHANGES [None]
  - PYREXIA [None]
  - SOMNOLENCE [None]
